FAERS Safety Report 5570636-3 (Version None)
Quarter: 2007Q4

REPORT INFORMATION
  Report Type: 
  Country: None (occurrence: None)
  Receive Date: 20071221
  Receipt Date: 20071218
  Transmission Date: 20080405
  Serious: Yes (Death)
  Sender: FDA-Public Use
  Company Number: JP-JNJFOC-20071204611

PATIENT
  Age: 75 Year
  Sex: Male

DRUGS (1)
  1. ITRIZOLE [Suspect]
     Indication: SYSTEMIC CANDIDA
     Route: 041

REACTIONS (3)
  - DISSEMINATED INTRAVASCULAR COAGULATION [None]
  - MULTI-ORGAN FAILURE [None]
  - PLATELET COUNT DECREASED [None]
